FAERS Safety Report 5842274-6 (Version None)
Quarter: 2008Q3

REPORT INFORMATION
  Report Type: 
  Country: None (occurrence: None)
  Receive Date: 20080812
  Receipt Date: 20080731
  Transmission Date: 20090109
  Serious: Yes (Hospitalization)
  Sender: FDA-Public Use
  Company Number: GB-ROCHE-579001

PATIENT
  Sex: Female

DRUGS (6)
  1. IBANDRONIC ACID [Suspect]
     Indication: BREAST CANCER METASTATIC
     Dosage: TEMPORARILY INTERRUPTED.
     Route: 048
     Dates: start: 20080425, end: 20080714
  2. DOCETAXEL [Concomitant]
     Dosage: RECEIVED CYCLE 4 ON 11 JULY 2008.
  3. PARACETAMOL [Concomitant]
     Route: 048
     Dates: start: 20080711, end: 20080722
  4. ORAMORPH SR [Concomitant]
  5. 1 CONCOMITANT DRUG [Concomitant]
     Dosage: DRUG NAME REPORTED: MOXALON.
     Dates: start: 20080723
  6. ADCAL D3 [Concomitant]
     Dates: end: 20080714

REACTIONS (1)
  - PNEUMOTHORAX [None]
